FAERS Safety Report 17810210 (Version 2)
Quarter: 2020Q2

REPORT INFORMATION
  Report Type: Spontaneous
  Country: US (occurrence: US)
  Receive Date: 20200520
  Receipt Date: 20200602
  Transmission Date: 20200714
  Serious: No
  Sender: FDA-Public Use
  Company Number: US-TEIKOKU PHARMA USA-TPU2020-00231

PATIENT
  Age: 63 Year
  Sex: Female

DRUGS (3)
  1. 12 OTHER MEDICINES [Concomitant]
  2. LIDOCAINE PATCH [Suspect]
     Active Substance: LIDOCAINE
     Indication: PAIN IN EXTREMITY
     Dosage: APPLY ONE PATCH TO EACH FOOT PER DAY
     Route: 061
     Dates: start: 2017
  3. LIDODERM [Suspect]
     Active Substance: LIDOCAINE
     Indication: PAIN IN EXTREMITY

REACTIONS (2)
  - Wrong technique in product usage process [Recovered/Resolved]
  - Application site pain [Recovered/Resolved]
